FAERS Safety Report 16835068 (Version 1)
Quarter: 2019Q3

REPORT INFORMATION
  Report Type: Spontaneous
  Country: US (occurrence: US)
  Receive Date: 20190920
  Receipt Date: 20190920
  Transmission Date: 20191005
  Serious: No
  Sender: FDA-Public Use
  Company Number: US-AVEDRO-AVE-2019-0205-AE

PATIENT
  Age: 20 Year
  Sex: Male

DRUGS (6)
  1. PHOTREXA VISCOUS [Suspect]
     Active Substance: RIBOFLAVIN 5^-PHOSPHATE SODIUM
     Indication: KERATOCONUS
     Route: 047
     Dates: start: 20190415, end: 20190415
  2. BANDAGE CONTACT LENS [Suspect]
     Active Substance: DEVICE
     Route: 047
     Dates: start: 20190425
  3. KXL SYSTEM [Suspect]
     Active Substance: DEVICE
     Indication: KERATOCONUS
     Route: 047
     Dates: start: 20190415, end: 20190415
  4. BANDAGE CONTACT LENS [Suspect]
     Active Substance: DEVICE
     Indication: PRODUCT USED FOR UNKNOWN INDICATION
     Route: 047
     Dates: start: 20190415
  5. BANDAGE CONTACT LENS [Suspect]
     Active Substance: DEVICE
     Route: 047
     Dates: start: 20190430
  6. PHOTREXA [Suspect]
     Active Substance: RIBOFLAVIN 5^-PHOSPHATE SODIUM
     Indication: KERATOCONUS
     Route: 047
     Dates: start: 20190415, end: 20190415

REACTIONS (6)
  - Corneal oedema [Recovered/Resolved with Sequelae]
  - Corneal thinning [Unknown]
  - Corneal epithelium defect [Recovered/Resolved]
  - Corneal opacity [Unknown]
  - Astigmatism [Not Recovered/Not Resolved]
  - Corneal epithelium defect [Recovered/Resolved with Sequelae]

NARRATIVE: CASE EVENT DATE: 20190416
